FAERS Safety Report 9410618 (Version 2)
Quarter: 2013Q3

REPORT INFORMATION
  Report Type: Spontaneous
  Country: US (occurrence: None)
  Receive Date: 20130605
  Receipt Date: 20130815
  Transmission Date: 20140515
  Serious: Yes (Other)
  Sender: FDA-Public Use
  Company Number: ADR-2012-01628

PATIENT
  Age: 34 Year
  Sex: Female

DRUGS (3)
  1. BACLOFEN INTRATHECAL (BACLOFEN INJECTION) [Suspect]
     Indication: PAIN
  2. FENTANYL [Concomitant]
  3. DILAUDID [Concomitant]

REACTIONS (8)
  - Hypoaesthesia [None]
  - Headache [None]
  - Pain [None]
  - Hypoaesthesia [None]
  - Post lumbar puncture syndrome [None]
  - Drug hypersensitivity [None]
  - No therapeutic response [None]
  - Infusion site mass [None]
